FAERS Safety Report 16152255 (Version 4)
Quarter: 2019Q2

REPORT INFORMATION
  Report Type: Spontaneous
  Country: SK (occurrence: SK)
  Receive Date: 20190403
  Receipt Date: 20190530
  Transmission Date: 20190711
  Serious: Yes (Life-Threatening, Hospitalization)
  Sender: FDA-Public Use
  Company Number: SK-ROCHE-2295441

PATIENT
  Age: 34 Year
  Sex: Female

DRUGS (4)
  1. ACTILYSE [Suspect]
     Active Substance: ALTEPLASE
     Indication: CEREBROVASCULAR ACCIDENT
     Dosage: 5.8+51.8 MILLIGRAM
     Route: 042
     Dates: start: 20180930, end: 20180930
  2. BETAHISTINE [Concomitant]
     Active Substance: BETAHISTINE
  3. EUTHYROX [Concomitant]
     Active Substance: LEVOTHYROXINE SODIUM
     Indication: PRODUCT USED FOR UNKNOWN INDICATION
     Route: 048
  4. DEXAMETHASONE. [Concomitant]
     Active Substance: DEXAMETHASONE

REACTIONS (10)
  - Muscle spasms [Recovered/Resolved]
  - Nausea [Unknown]
  - Migraine [Unknown]
  - Blood calcitonin increased [Recovered/Resolved]
  - Oxygen saturation decreased [Recovered/Resolved]
  - Brain natriuretic peptide increased [Recovered/Resolved]
  - C-reactive protein increased [Recovered/Resolved]
  - Headache [Unknown]
  - Vertigo [Unknown]
  - Sepsis [Recovered/Resolved]
